FAERS Safety Report 6181277-1 (Version None)
Quarter: 2009Q2

REPORT INFORMATION
  Report Type: 
  Country: None (occurrence: None)
  Receive Date: 20090504
  Receipt Date: 20090424
  Transmission Date: 20091009
  Serious: Yes (Other)
  Sender: FDA-Public Use
  Company Number: 6050973

PATIENT
  Sex: Female

DRUGS (1)
  1. LEVOTHYROXINE SODIUM [Suspect]
     Indication: HYPOTHYROIDISM
     Dosage: 200 MG (100 MG, 2 IN 1 D), ORAL; 1-2 YEARS
     Route: 048

REACTIONS (3)
  - DYSPNOEA [None]
  - PANIC ATTACK [None]
  - RESTLESSNESS [None]
